FAERS Safety Report 5363996-X (Version None)
Quarter: 2007Q2

REPORT INFORMATION
  Report Type: 
  Country: None (occurrence: None)
  Receive Date: 20070530
  Receipt Date: 20070305
  Transmission Date: 20071010
  Serious: No
  Sender: FDA-Public Use
  Company Number: 2006PV024016

PATIENT
  Age: 67 Year
  Sex: Female

DRUGS (13)
  1. BYETTA [Suspect]
     Indication: DIABETES MELLITUS NON-INSULIN-DEPENDENT
     Dosage: 5 MCG; BID; SC
     Route: 058
     Dates: start: 20060925, end: 20061025
  2. LANTUS [Concomitant]
  3. HUMULIN N [Concomitant]
  4. METFORMIN HCL [Concomitant]
  5. VERAPAMIL [Concomitant]
  6. SYNTHROID [Concomitant]
  7. PLAVIX [Concomitant]
  8. NIFEDIPINE [Concomitant]
  9. TOPROL-XL [Concomitant]
  10. TRIAMTERENE AND HYDROCHLOROTHIAZIDE [Concomitant]
  11. EVISTA [Concomitant]
  12. FOSAMAX [Concomitant]
  13. SIMVASTATIN [Concomitant]

REACTIONS (3)
  - DYSPNOEA [None]
  - FEELING ABNORMAL [None]
  - HYPERSENSITIVITY [None]
